FAERS Safety Report 14720211 (Version 1)
Quarter: 2018Q2

REPORT INFORMATION
  Report Type: Spontaneous
  Country: US (occurrence: US)
  Receive Date: 20180405
  Receipt Date: 20180405
  Transmission Date: 20180711
  Serious: No
  Sender: FDA-Public Use
  Company Number: US-ALLERGAN-1802428US

PATIENT
  Sex: Female

DRUGS (2)
  1. VRAYLAR [Suspect]
     Active Substance: CARIPRAZINE
     Indication: ANXIETY
  2. VRAYLAR [Suspect]
     Active Substance: CARIPRAZINE
     Indication: PERINATAL DEPRESSION
     Dosage: 1.5 MG, QD
     Route: 065
     Dates: start: 2017

REACTIONS (3)
  - Pregnancy [Unknown]
  - Irritability [Not Recovered/Not Resolved]
  - Off label use [Unknown]
